FAERS Safety Report 9165257 (Version 1)
Quarter: 2013Q1

REPORT INFORMATION
  Report Type: Spontaneous
  Country: ES (occurrence: None)
  Receive Date: 20130228
  Receipt Date: 20130228
  Transmission Date: 20140127
  Serious: Yes (Other)
  Sender: FDA-Public Use
  Company Number: B0870686A

PATIENT
  Sex: 0

DRUGS (3)
  1. EPIVIR (LAMIVUDINE-HIV) [Suspect]
  2. ZIAGEN [Suspect]
  3. LOPINAVIR + RITONAVIR [Suspect]

REACTIONS (1)
  - Progressive multifocal leukoencephalopathy [None]
